FAERS Safety Report 23274520 (Version 1)
Quarter: 2023Q4

REPORT INFORMATION
  Report Type: Spontaneous
  Country: US (occurrence: US)
  Receive Date: 20231208
  Receipt Date: 20231208
  Transmission Date: 20240110
  Serious: Yes (Other)
  Sender: FDA-Public Use
  Company Number: US-BRISTOL-MYERS SQUIBB COMPANY-2023-176866

PATIENT
  Age: 82 Year
  Sex: Female

DRUGS (1)
  1. REVLIMID [Suspect]
     Active Substance: LENALIDOMIDE
     Indication: Product used for unknown indication
     Dosage: ONCE DAILY FOR 7 DAYS ON AND 7 DAYS OFF
     Route: 048
     Dates: start: 201607

REACTIONS (3)
  - Neuropathy peripheral [Unknown]
  - Herpes zoster [Unknown]
  - Off label use [Unknown]
